FAERS Safety Report 15682523 (Version 2)
Quarter: 2019Q1

REPORT INFORMATION
  Report Type: Spontaneous
  Country: US (occurrence: US)
  Receive Date: 20181203
  Receipt Date: 20190108
  Transmission Date: 20190417
  Serious: No
  Sender: FDA-Public Use
  Company Number: US-PFIZER INC-2018484817

PATIENT
  Age: 15 Year
  Sex: Male
  Weight: 43.8 kg

DRUGS (2)
  1. GENOTROPIN [Suspect]
     Active Substance: SOMATROPIN
     Indication: GROWTH HORMONE DEFICIENCY
     Dosage: 2.2 MG, UNK
     Dates: start: 201710
  2. GENOTROPIN [Suspect]
     Active Substance: SOMATROPIN
     Dosage: 2.2 MG, 1X/DAY
     Dates: start: 201711

REACTIONS (2)
  - Product odour abnormal [Not Recovered/Not Resolved]
  - Injection site pain [Not Recovered/Not Resolved]
